FAERS Safety Report 5290642-6 (Version None)
Quarter: 2007Q2

REPORT INFORMATION
  Report Type: 
  Country: None (occurrence: None)
  Receive Date: 20070409
  Receipt Date: 20070404
  Transmission Date: 20071010
  Serious: Yes (Other)
  Sender: FDA-Public Use
  Company Number: US-GLAXOSMITHKLINE-A0645988A

PATIENT
  Age: 8 Year
  Sex: Male

DRUGS (4)
  1. LAMOTRIGINE [Suspect]
     Indication: PARTIAL SEIZURES
     Dosage: 150MG TWICE PER DAY
     Route: 048
     Dates: start: 20060801, end: 20070201
  2. CLARITIN [Concomitant]
  3. TYLENOL [Concomitant]
  4. MOTRIN [Concomitant]

REACTIONS (3)
  - CONVULSION [None]
  - DRUG ADMINISTRATION ERROR [None]
  - MIGRAINE [None]
